FAERS Safety Report 12076998 (Version 1)
Quarter: 2016Q1

REPORT INFORMATION
  Report Type: Spontaneous
  Country: CH (occurrence: CH)
  Receive Date: 20160215
  Receipt Date: 20160215
  Transmission Date: 20160526
  Serious: Yes (Other)
  Sender: FDA-Public Use
  Company Number: CH-BAXTER-2016BAX006853

PATIENT
  Age: 58 Year
  Sex: Female

DRUGS (4)
  1. UROMITEXAN 400 ML, L?SUNG ZUR INTRAVEN?SEN ANWENDUNG [Suspect]
     Active Substance: MESNA
     Indication: PLEOMORPHIC MALIGNANT FIBROUS HISTIOCYTOMA
     Dosage: FIRST, SECOND AND THIRD CYCLES
     Route: 041
  2. HOLOXAN 2 G [Suspect]
     Active Substance: IFOSFAMIDE
     Indication: PLEOMORPHIC MALIGNANT FIBROUS HISTIOCYTOMA
     Dosage: FIRST, SECOND AND THIRD CYCLES
     Route: 041
  3. HOLOXAN 2 G [Suspect]
     Active Substance: IFOSFAMIDE
     Dosage: FOURTH CYCLE, VIALS
     Route: 041
     Dates: start: 20151109, end: 20151109
  4. UROMITEXAN 400 ML, L?SUNG ZUR INTRAVEN?SEN ANWENDUNG [Suspect]
     Active Substance: MESNA
     Dosage: FOURTH CYCLE, VIALS
     Route: 041
     Dates: start: 20151109, end: 20151109

REACTIONS (6)
  - Drug administration error [Recovered/Resolved]
  - Injection site pain [Recovered/Resolved]
  - Erythema [Unknown]
  - Injection site extravasation [Recovered/Resolved]
  - Oedema [Unknown]
  - Pruritus [Unknown]

NARRATIVE: CASE EVENT DATE: 20151109
